FAERS Safety Report 12384322 (Version 1)
Quarter: 2016Q2

REPORT INFORMATION
  Report Type: Spontaneous
  Country: US (occurrence: None)
  Receive Date: 20160518
  Receipt Date: 20160518
  Transmission Date: 20160815
  Serious: Yes (Other)
  Sender: FDA-Public Use
  Company Number: None

PATIENT
  Age: 45 Year
  Sex: Female
  Weight: 61.24 kg

DRUGS (10)
  1. COQ10 [Concomitant]
     Active Substance: UBIDECARENONE
  2. TURMERIC [Concomitant]
     Active Substance: TURMERIC
  3. PROBIOTICS [Concomitant]
     Active Substance: PROBIOTICS NOS
  4. VITAMIN C [Concomitant]
     Active Substance: ASCORBIC ACID
  5. LUPRON DEPOT [Suspect]
     Active Substance: LEUPROLIDE ACETATE
     Indication: ENDOMETRIOSIS
     Route: 030
     Dates: start: 20101025, end: 20110124
  6. LUPRON DEPOT [Suspect]
     Active Substance: LEUPROLIDE ACETATE
     Indication: INFERTILITY
     Route: 030
     Dates: start: 20101025, end: 20110124
  7. FISH OIL [Concomitant]
     Active Substance: FISH OIL
  8. ZINC [Concomitant]
     Active Substance: ZINC\ZINC CHLORIDE
  9. VITAMIN B [Concomitant]
     Active Substance: VITAMIN B
  10. VITAMIN D [Concomitant]
     Active Substance: CHOLECALCIFEROL

REACTIONS (4)
  - Goitre [None]
  - Pain [None]
  - Off label use [None]
  - Ovarian cyst [None]

NARRATIVE: CASE EVENT DATE: 20120709
